FAERS Safety Report 7302067-X (Version None)
Quarter: 2011Q1

REPORT INFORMATION
  Report Type: 
  Country: None (occurrence: None)
  Receive Date: 20110207
  Receipt Date: 20110125
  Transmission Date: 20110831
  Serious: Yes (Other)
  Sender: FDA-Public Use
  Company Number: 024326

PATIENT
  Sex: Female
  Weight: 74.8435 kg

DRUGS (1)
  1. CIMZIA [Suspect]
     Indication: CROHN'S DISEASE
     Dosage: (400 MG 1X/MONTH SUBCUTANEOUS)
     Route: 058
     Dates: start: 20091101, end: 20101118

REACTIONS (4)
  - ULCER [None]
  - WOUND SECRETION [None]
  - STAPHYLOCOCCAL INFECTION [None]
  - ACNE [None]
